FAERS Safety Report 11368640 (Version 1)
Quarter: 2015Q3

REPORT INFORMATION
  Report Type: Spontaneous
  Country: DE (occurrence: DE)
  Receive Date: 20150812
  Receipt Date: 20150812
  Transmission Date: 20151125
  Serious: Yes (Other)
  Sender: FDA-Public Use
  Company Number: DE-SUN PHARMACEUTICAL INDUSTRIES LTD-2015RR-101196

PATIENT

DRUGS (2)
  1. FOLIO [Concomitant]
     Active Substance: FOLIC ACID
     Indication: DEPRESSION
     Dosage: 0.4 MG, DAILY, FROM 0-12.2 GESTATIONAL WEEK
     Route: 064
  2. CITALOPRAM [Suspect]
     Active Substance: CITALOPRAM HYDROBROMIDE
     Indication: DEPRESSION
     Dosage: 40 MG, DAILY, FROM 0-39 GESTATIONAL WEEK
     Route: 064
     Dates: start: 20140821, end: 20150521

REACTIONS (2)
  - Respiratory disorder neonatal [Recovered/Resolved]
  - Apnoea neonatal [Recovered/Resolved]

NARRATIVE: CASE EVENT DATE: 20150521
